FAERS Safety Report 10151918 (Version 1)
Quarter: 2014Q2

REPORT INFORMATION
  Report Type: Spontaneous
  Country: US (occurrence: US)
  Receive Date: 20140505
  Receipt Date: 20140505
  Transmission Date: 20141212
  Serious: No
  Sender: FDA-Public Use
  Company Number: US-JNJFOC-20140415582

PATIENT
  Age: 58 Year
  Sex: Female
  Weight: 67.13 kg

DRUGS (2)
  1. DURAGESIC [Suspect]
     Indication: PAIN
     Route: 062
  2. DURAGESIC [Suspect]
     Indication: PAIN
     Route: 062

REACTIONS (2)
  - Wrong technique in drug usage process [Unknown]
  - Product adhesion issue [Unknown]
